FAERS Safety Report 8772665 (Version 1)
Quarter: 2012Q4

REPORT INFORMATION
  Report Type: 
  Country: US (occurrence: US)
  Receive Date: 20120905
  Receipt Date: 20120905
  Transmission Date: 20130627
  Serious: Yes (Hospitalization, Other)
  Sender: FDA-Public Use
  Company Number: US-PFIZER INC-2012214819

PATIENT
  Age: 76 Year
  Sex: Female
  Weight: 76.19 kg

DRUGS (4)
  1. LYRICA [Suspect]
     Indication: NEUROPATHY PERIPHERAL
     Dosage: 2,5 mg, 2x/day
     Route: 048
  2. COUMADINE [Concomitant]
     Indication: ANTICOAGULANT THERAPY
     Dosage: 2.5 mg, daily
  3. COUMADINE [Concomitant]
     Indication: HEART RATE IRREGULAR
  4. MIRAPEX [Concomitant]
     Indication: RESTLESS LEGS SYNDROME
     Dosage: 0.25 mg, 3x/day

REACTIONS (7)
  - Cardiac failure congestive [Unknown]
  - Scoliosis surgery [Unknown]
  - Lymphadenopathy [Unknown]
  - Oedema peripheral [Not Recovered/Not Resolved]
  - Skin oedema [Unknown]
  - Weight increased [Unknown]
  - Burning sensation [Unknown]
